FAERS Safety Report 19524621 (Version 7)
Quarter: 2022Q2

REPORT INFORMATION
  Report Type: Report from Study
  Country: US (occurrence: US)
  Receive Date: 20210712
  Receipt Date: 20220516
  Transmission Date: 20220720
  Serious: No
  Sender: FDA-Public Use
  Company Number: NVSC2021US155506

PATIENT
  Sex: Female

DRUGS (1)
  1. KESIMPTA [Suspect]
     Active Substance: OFATUMUMAB
     Indication: Product used for unknown indication
     Dosage: UNK
     Route: 065

REACTIONS (6)
  - Feeling abnormal [Unknown]
  - Toothache [Unknown]
  - Insomnia [Unknown]
  - Trigeminal neuralgia [Recovering/Resolving]
  - Injection site haemorrhage [Unknown]
  - Fatigue [Not Recovered/Not Resolved]
